FAERS Safety Report 25217881 (Version 2)
Quarter: 2025Q2

REPORT INFORMATION
  Report Type: Report from Study
  Country: US (occurrence: US)
  Receive Date: 20250421
  Receipt Date: 20250612
  Transmission Date: 20250716
  Serious: Yes (Other)
  Sender: ABBVIE
  Company Number: US-ABBVIE-6234226

PATIENT
  Age: 49 Year
  Sex: Female

DRUGS (4)
  1. SKYRIZI [Suspect]
     Active Substance: RISANKIZUMAB-RZAA
     Indication: Crohn^s disease
     Dosage: WEEK 12?FORM STRENGTH: 360MG/2.4M
     Route: 058
     Dates: start: 20250428
  2. SKYRIZI [Suspect]
     Active Substance: RISANKIZUMAB-RZAA
     Indication: Crohn^s disease
     Route: 042
     Dates: start: 20250127, end: 20250127
  3. SKYRIZI [Suspect]
     Active Substance: RISANKIZUMAB-RZAA
     Indication: Crohn^s disease
     Route: 042
     Dates: start: 20250324, end: 20250324
  4. SKYRIZI [Suspect]
     Active Substance: RISANKIZUMAB-RZAA
     Indication: Crohn^s disease
     Route: 042
     Dates: start: 20250225, end: 20250225

REACTIONS (9)
  - Deafness [Recovered/Resolved]
  - Pain [Recovered/Resolved]
  - Ear pain [Not Recovered/Not Resolved]
  - Sinus pain [Not Recovered/Not Resolved]
  - Labyrinthitis [Not Recovered/Not Resolved]
  - Toothache [Not Recovered/Not Resolved]
  - Nasopharyngitis [Unknown]
  - Sinus congestion [Recovered/Resolved]
  - Ear congestion [Recovered/Resolved]

NARRATIVE: CASE EVENT DATE: 20250101
